FAERS Safety Report 13756196 (Version 1)
Quarter: 2017Q3

REPORT INFORMATION
  Report Type: Spontaneous
  Country: JP (occurrence: JP)
  Receive Date: 20170714
  Receipt Date: 20170714
  Transmission Date: 20171127
  Serious: Yes (Other)
  Sender: FDA-Public Use
  Company Number: JP-HQ SPECIALTY-JP-2017INT000235

PATIENT
  Age: 51 Year
  Sex: Male
  Weight: 40 kg

DRUGS (7)
  1. DEXMEDETOMIDINE HYDROCHLORIDE. [Suspect]
     Active Substance: DEXMEDETOMIDINE HYDROCHLORIDE
     Dosage: MAINTAINED ON THIS DOSE (1 UG/KG,1 IN 1 H)
     Route: 042
  2. REMI FENTANIL [Suspect]
     Active Substance: REMIFENTANIL
     Dosage: MAINTAINED ON THIS DOSE (0.08 UG/KG,1 MIN)
     Route: 042
  3. PROPOFOL. [Suspect]
     Active Substance: PROPOFOL
     Dosage: TCI 2.0 MCG/ML; MAINTAINED ON THIS DOSE
  4. FENTANYL. [Suspect]
     Active Substance: FENTANYL
     Indication: GENERAL ANAESTHESIA
     Dosage: (100 UG)
     Route: 042
  5. DEXMEDETOMIDINE HYDROCHLORIDE. [Suspect]
     Active Substance: DEXMEDETOMIDINE HYDROCHLORIDE
     Indication: GENERAL ANAESTHESIA
     Dosage: 72 UG/KG (3 UG/KG,1 IN 1 H)
     Route: 042
  6. REMIFENTANIL [Suspect]
     Active Substance: REMIFENTANIL
     Indication: GENERAL ANAESTHESIA
     Dosage: (0.13 UG/KG,1 MIN)
     Route: 042
  7. PROPOFOL. [Suspect]
     Active Substance: PROPOFOL
     Indication: GENERAL ANAESTHESIA
     Dosage: 3.0 MCG/ML
     Route: 042

REACTIONS (2)
  - Arteriospasm coronary [Recovered/Resolved]
  - Product use in unapproved indication [Unknown]
